FAERS Safety Report 9216676 (Version 1)
Quarter: 2013Q2

REPORT INFORMATION
  Report Type: Spontaneous
  Country: US (occurrence: US)
  Receive Date: 20130408
  Receipt Date: 20130408
  Transmission Date: 20140414
  Serious: Yes (Other)
  Sender: FDA-Public Use
  Company Number: US-PFIZER INC-2013104629

PATIENT
  Age: 64 Year
  Sex: Female
  Weight: 62.13 kg

DRUGS (4)
  1. AROMASIN [Suspect]
     Indication: BREAST CANCER
     Dosage: 25 MG, 1X/DAY
     Route: 048
     Dates: start: 2010
  2. LABETALOL [Suspect]
     Indication: HYPERTENSION
     Dosage: 100 MG, 2X/DAY
  3. NEXIUM [Concomitant]
     Indication: HIATUS HERNIA
     Dosage: 20 MG, 1X/DAY
  4. NEXIUM [Concomitant]
     Indication: BARRETT^S OESOPHAGUS

REACTIONS (21)
  - Metastases to bone [Unknown]
  - Dehydration [Unknown]
  - Renal disorder [Unknown]
  - Eosinophil count increased [Unknown]
  - Hypertension [Unknown]
  - Alopecia [Unknown]
  - Nausea [Not Recovered/Not Resolved]
  - Headache [Not Recovered/Not Resolved]
  - Pain [Not Recovered/Not Resolved]
  - Musculoskeletal pain [Unknown]
  - Neck pain [Unknown]
  - Malaise [Not Recovered/Not Resolved]
  - Muscle spasms [Not Recovered/Not Resolved]
  - Feeling abnormal [Not Recovered/Not Resolved]
  - Discomfort [Unknown]
  - Anxiety [Unknown]
  - Sleep disorder [Unknown]
  - Weight decreased [Unknown]
  - Pollakiuria [Unknown]
  - Decreased appetite [Unknown]
  - Inappropriate schedule of drug administration [Unknown]
